FAERS Safety Report 24385557 (Version 2)
Quarter: 2024Q4

REPORT INFORMATION
  Report Type: Spontaneous
  Country: CA (occurrence: CA)
  Receive Date: 20241001
  Receipt Date: 20241105
  Transmission Date: 20250114
  Serious: Yes (Other)
  Sender: ALEXION PHARMACEUTICALS
  Company Number: CA-AstraZeneca-CH-00708690A

PATIENT

DRUGS (1)
  1. FASENRA [Suspect]
     Active Substance: BENRALIZUMAB
     Dosage: UNK

REACTIONS (10)
  - Pruritus [Unknown]
  - Urticaria [Unknown]
  - Chest discomfort [Unknown]
  - Arthralgia [Unknown]
  - Asthma [Unknown]
  - Chronic sinusitis [Unknown]
  - Osteoarthritis [Unknown]
  - Dyslipidaemia [Unknown]
  - Rash [Unknown]
  - Inappropriate schedule of product administration [Unknown]
